FAERS Safety Report 9890406 (Version 3)
Quarter: 2014Q1

REPORT INFORMATION
  Report Type: Report from Study
  Country: GB (occurrence: GB)
  Receive Date: 20140212
  Receipt Date: 20140219
  Transmission Date: 20141002
  Serious: Yes (Hospitalization, Other)
  Sender: FDA-Public Use
  Company Number: GB-ASTRAZENECA-2014SE07869

PATIENT
  Age: 31329 Day
  Sex: Female
  Weight: 56.7 kg

DRUGS (2)
  1. AZD6140 [Suspect]
     Indication: PERIPHERAL ARTERIAL OCCLUSIVE DISEASE
     Route: 048
     Dates: start: 20131220, end: 20140104
  2. AZD6140 [Suspect]
     Indication: PERIPHERAL ARTERIAL OCCLUSIVE DISEASE
     Route: 048
     Dates: end: 20140129

REACTIONS (2)
  - Angina pectoris [Recovered/Resolved]
  - Panic attack [Recovered/Resolved]
